FAERS Safety Report 7676150-3 (Version None)
Quarter: 2011Q3

REPORT INFORMATION
  Report Type: 
  Country: None (occurrence: None)
  Receive Date: 20110805
  Receipt Date: 20110721
  Transmission Date: 20111222
  Serious: Yes (Hospitalization)
  Sender: FDA-Public Use
  Company Number: 2011MA009250

PATIENT
  Age: 33 Year
  Sex: Female
  Weight: 104 kg

DRUGS (3)
  1. HYDROCORTISONE [Suspect]
     Indication: PITUITARY-DEPENDENT CUSHING'S SYNDROME
     Dosage: 40 MG;QD
  2. ORAL CONTRACEPTIVE [Concomitant]
  3. LEVOTHYROXINE SODIUM [Concomitant]

REACTIONS (12)
  - DRUG DOSE OMISSION [None]
  - CSF PRESSURE INCREASED [None]
  - CSF TEST ABNORMAL [None]
  - DIABETES INSIPIDUS [None]
  - PAPILLOEDEMA [None]
  - HEADACHE [None]
  - INTRACRANIAL PRESSURE INCREASED [None]
  - NAUSEA [None]
  - VOMITING [None]
  - VISION BLURRED [None]
  - BLOOD THYROID STIMULATING HORMONE DECREASED [None]
  - BLOOD CORTISOL DECREASED [None]
